FAERS Safety Report 6800641-8 (Version None)
Quarter: 2010Q2

REPORT INFORMATION
  Report Type: 
  Country: None (occurrence: None)
  Receive Date: 20100629
  Receipt Date: 20100618
  Transmission Date: 20101027
  Serious: Yes (Disabling, Other)
  Sender: FDA-Public Use
  Company Number: GB-JNJFOC-20100604247

PATIENT
  Age: 59 Year
  Sex: Male
  Weight: 60.6 kg

DRUGS (5)
  1. STELARA [Suspect]
     Indication: PSORIATIC ARTHROPATHY
     Route: 058
     Dates: start: 20100112
  2. STELARA [Suspect]
     Indication: PSORIASIS
     Route: 058
     Dates: start: 20100112
  3. HUMIRA [Concomitant]
     Indication: DRUG USE FOR UNKNOWN INDICATION
     Route: 058
  4. METHOTREXATE [Concomitant]
     Indication: PSORIATIC ARTHROPATHY
     Route: 048
  5. PREDNISOLONE [Concomitant]
     Indication: PSORIATIC ARTHROPATHY
     Route: 048

REACTIONS (5)
  - ARTHRITIS BACTERIAL [None]
  - FINGER DEFORMITY [None]
  - OFF LABEL USE [None]
  - PAIN IN EXTREMITY [None]
  - STAPHYLOCOCCAL SEPSIS [None]
